FAERS Safety Report 12393536 (Version 1)
Quarter: 2016Q2

REPORT INFORMATION
  Report Type: Report from Study
  Country: BR (occurrence: BR)
  Receive Date: 20160523
  Receipt Date: 20160523
  Transmission Date: 20160815
  Serious: Yes (Hospitalization, Other)
  Sender: FDA-Public Use
  Company Number: PHHY2015BR105498

PATIENT
  Age: 27 Year
  Sex: Male
  Weight: 43 kg

DRUGS (1)
  1. EXJADE [Suspect]
     Active Substance: DEFERASIROX
     Indication: SICKLE CELL ANAEMIA
     Dosage: 1750 MG, (3 DF OF 500 MG AND 1 DF OF 250 MG), UNK
     Route: 065
     Dates: start: 2008

REACTIONS (5)
  - Coma [Unknown]
  - Arthropathy [Unknown]
  - Road traffic accident [Unknown]
  - Movement disorder [Unknown]
  - Lower limb fracture [Unknown]

NARRATIVE: CASE EVENT DATE: 200807
